FAERS Safety Report 18215949 (Version 9)
Quarter: 2024Q1

REPORT INFORMATION
  Report Type: Report from Study
  Country: JP (occurrence: JP)
  Receive Date: 20200831
  Receipt Date: 20240221
  Transmission Date: 20240410
  Serious: Yes (Hospitalization)
  Sender: FDA-Public Use
  Company Number: JP-ABBVIE-17K-087-2171915-00

PATIENT
  Age: 76 Year
  Sex: Female
  Weight: 50 kg

DRUGS (18)
  1. CARBIDOPA\LEVODOPA [Suspect]
     Active Substance: CARBIDOPA\LEVODOPA
     Indication: Parkinson^s disease
     Dosage: MD: 11 ML, CD: 3.0 ML/HR X 16 HR, ED: 2 ML/UNIT X 3
     Route: 050
     Dates: start: 20181127
  2. CARBIDOPA\LEVODOPA [Suspect]
     Active Substance: CARBIDOPA\LEVODOPA
     Dosage: MD: 8 ML, CD: 3.0 ML/HR ? 16 HRS, ED: 2 ML/UNIT ? 3
     Route: 050
     Dates: start: 20171105, end: 20181127
  3. CARBIDOPA\LEVODOPA [Suspect]
     Active Substance: CARBIDOPA\LEVODOPA
     Dosage: MD: 8 ML, CD: 2.7 ML/HR ? 16 HRS, ED: 2 ML/UNIT ? 3
     Route: 050
     Dates: start: 20171026, end: 20171027
  4. CARBIDOPA\LEVODOPA [Suspect]
     Active Substance: CARBIDOPA\LEVODOPA
     Route: 050
     Dates: start: 20171023, end: 20171026
  5. CARBIDOPA\LEVODOPA [Suspect]
     Active Substance: CARBIDOPA\LEVODOPA
     Dosage: MD: 8 ML, CD: 2.9 ML/HR ? 16 HRS, ED: 2 ML/UNIT ? 3
     Route: 050
     Dates: start: 20171031, end: 20171105
  6. CARBIDOPA\LEVODOPA [Suspect]
     Active Substance: CARBIDOPA\LEVODOPA
     Dosage: MD: 8 ML, CD: 2.8 ML/HR ? 16 HRS, ED: 2 ML/UNIT ? 3
     Route: 050
     Dates: start: 20171027, end: 20171031
  7. ISTRADEFYLLINE [Concomitant]
     Active Substance: ISTRADEFYLLINE
     Indication: Parkinson^s disease
     Route: 048
  8. NEUPRO [Concomitant]
     Active Substance: ROTIGOTINE
     Indication: Parkinson^s disease
     Route: 062
     Dates: start: 20171101, end: 20181003
  9. NEUPRO [Concomitant]
     Active Substance: ROTIGOTINE
     Indication: Parkinson^s disease
     Route: 062
     Dates: start: 20181003
  10. MAGNESIUM OXIDE [Concomitant]
     Active Substance: MAGNESIUM OXIDE
     Indication: Product used for unknown indication
     Route: 048
     Dates: start: 20171024
  11. SENNOSIDES [Concomitant]
     Active Substance: SENNOSIDES
     Indication: Product used for unknown indication
     Route: 048
     Dates: start: 20171024
  12. ZOLPIDEM TARTRATE [Concomitant]
     Active Substance: ZOLPIDEM TARTRATE
     Indication: Product used for unknown indication
     Route: 048
     Dates: start: 20171024
  13. URAPIDIL [Concomitant]
     Active Substance: URAPIDIL
     Indication: Prophylaxis
     Dosage: 15 MILLIGRAM
     Route: 048
     Dates: start: 20171024
  14. CARBIDOPA AND LEVODOPA [Concomitant]
     Active Substance: CARBIDOPA\LEVODOPA
     Indication: Parkinson^s disease
     Dosage: 100 MILLIGRAM
     Dates: start: 20190806
  15. CARBIDOPA AND LEVODOPA [Concomitant]
     Active Substance: CARBIDOPA\LEVODOPA
     Indication: Parkinson^s disease
     Dosage: 50 MILLIGRAM
     Dates: start: 20171121, end: 20190806
  16. CARBIDOPA LEVODOPA [Concomitant]
     Active Substance: CARBIDOPA\LEVODOPA
     Indication: Parkinson^s disease
     Dosage: 50 MILLIGRAM
     Route: 048
     Dates: start: 20171121, end: 20180425
  17. CARBIDOPA LEVODOPA [Concomitant]
     Active Substance: CARBIDOPA\LEVODOPA
     Indication: Parkinson^s disease
     Dosage: 100 MILLIGRAM
     Route: 048
     Dates: start: 20180425
  18. CARBIDOPA LEVODOPA [Concomitant]
     Active Substance: CARBIDOPA\LEVODOPA
     Indication: Parkinson^s disease
     Dosage: 0.5 TO 1 TABLET
     Route: 048

REACTIONS (47)
  - Immunisation reaction [Recovered/Resolved]
  - Fracture [Unknown]
  - Mobility decreased [Unknown]
  - Impaired healing [Recovering/Resolving]
  - Product administration error [Unknown]
  - Device issue [Unknown]
  - Insomnia [Unknown]
  - Device difficult to use [Not Recovered/Not Resolved]
  - Musculoskeletal stiffness [Unknown]
  - Posture abnormal [Unknown]
  - Laziness [Unknown]
  - Sense of oppression [Unknown]
  - Malaise [Unknown]
  - Fatigue [Unknown]
  - Tremor [Recovered/Resolved]
  - Asthenia [Unknown]
  - Stoma site pruritus [Unknown]
  - Stoma site abscess [Recovering/Resolving]
  - Therapeutic product effect incomplete [Unknown]
  - Akinesia [Unknown]
  - Stoma site discharge [Not Recovered/Not Resolved]
  - Parkinson^s disease [Unknown]
  - Drug ineffective [Unknown]
  - Cardiovascular insufficiency [Unknown]
  - Dysstasia [Unknown]
  - Weight decreased [Unknown]
  - Fall [Unknown]
  - Injury [Unknown]
  - Feeding disorder [Unknown]
  - Stomatitis [Unknown]
  - Stoma site pain [Recovering/Resolving]
  - Stoma site hypergranulation [Unknown]
  - Hypertension [Unknown]
  - Deficiency anaemia [Unknown]
  - Constipation [Unknown]
  - Dysuria [Unknown]
  - Dyskinesia [Unknown]
  - Tremor [Unknown]
  - Head injury [Unknown]
  - Gait disturbance [Unknown]
  - Varicose vein [Unknown]
  - Hypoaesthesia [Unknown]
  - Pneumonia [Recovered/Resolved]
  - Stoma site erythema [Recovering/Resolving]
  - Irritability [Unknown]
  - Restless legs syndrome [Recovering/Resolving]
  - Device use issue [Recovered/Resolved]

NARRATIVE: CASE EVENT DATE: 20171026
